FAERS Safety Report 10258035 (Version 2)
Quarter: 2014Q2

REPORT INFORMATION
  Report Type: Spontaneous
  Country: US (occurrence: US)
  Receive Date: 20140625
  Receipt Date: 20140625
  Transmission Date: 20141212
  Serious: Yes (Death)
  Sender: FDA-Public Use
  Company Number: US-PFIZER INC-9300152

PATIENT
  Sex: Female

DRUGS (1)
  1. ZOLOFT [Suspect]
     Indication: DEPRESSION
     Dosage: 50 MG, DAILY
     Route: 048

REACTIONS (2)
  - Completed suicide [Fatal]
  - Gun shot wound [Fatal]
